FAERS Safety Report 9892272 (Version 1)
Quarter: 2014Q1

REPORT INFORMATION
  Report Type: Spontaneous
  Country: CL (occurrence: CL)
  Receive Date: 20140212
  Receipt Date: 20140212
  Transmission Date: 20141002
  Serious: Yes (Hospitalization)
  Sender: FDA-Public Use
  Company Number: CL-PFIZER INC-2014039537

PATIENT
  Age: 81 Year
  Sex: Female

DRUGS (3)
  1. ALTRULINE [Suspect]
     Indication: MOOD ALTERED
     Dosage: UNK
     Dates: start: 2008, end: 2011
  2. AMLODIPINE [Concomitant]
     Dosage: UNK
  3. NEO-SINTROM [Concomitant]
     Dosage: UNK

REACTIONS (7)
  - Cardiac disorder [Unknown]
  - Dizziness [Recovered/Resolved]
  - Insomnia [Recovered/Resolved]
  - Libido decreased [Recovered/Resolved]
  - Fatigue [Recovered/Resolved]
  - Abdominal discomfort [Not Recovered/Not Resolved]
  - Intentional drug misuse [Recovered/Resolved]
